FAERS Safety Report 18963910 (Version 1)
Quarter: 2021Q1

REPORT INFORMATION
  Report Type: Spontaneous
  Country: US (occurrence: US)
  Receive Date: 20210303
  Receipt Date: 20210303
  Transmission Date: 20210420
  Serious: No
  Sender: FDA-Public Use
  Company Number: US-AMNEAL PHARMACEUTICALS-2020-AMRX-00119

PATIENT
  Age: 90 Year
  Sex: Female
  Weight: 97 kg

DRUGS (1)
  1. RYTARY [Suspect]
     Active Substance: CARBIDOPA\LEVODOPA
     Indication: PARKINSON^S DISEASE
     Dosage: 2 CAPSULES, QID 5 HOURS APART 6 AM,11 AM,4 PM, AND 9 PM
     Route: 048
     Dates: start: 20200102, end: 20200212

REACTIONS (8)
  - Alopecia [Unknown]
  - Nightmare [Unknown]
  - Dry mouth [Unknown]
  - Nausea [Unknown]
  - Constipation [Recovering/Resolving]
  - Dizziness [Recovering/Resolving]
  - Anxiety [Recovering/Resolving]
  - Abdominal discomfort [Unknown]

NARRATIVE: CASE EVENT DATE: 202001
